FAERS Safety Report 25183542 (Version 1)
Quarter: 2025Q2

REPORT INFORMATION
  Report Type: Spontaneous
  Country: US (occurrence: None)
  Receive Date: 20250409
  Receipt Date: 20250409
  Transmission Date: 20250716
  Serious: Yes (Hospitalization)
  Sender: FDA-CTU
  Company Number: None

PATIENT
  Age: 67 Year
  Sex: Female

DRUGS (20)
  1. MYCOPHENOLIC ACID [Suspect]
     Active Substance: MYCOPHENOLIC ACID
     Indication: Renal transplant
     Dosage: FREQUENCY : TWICE A DAY;?
     Route: 048
  2. ENVARSUS XR [Suspect]
     Active Substance: TACROLIMUS
  3. CYMBALTA [Concomitant]
     Active Substance: DULOXETINE HYDROCHLORIDE
  4. GLIPIZIDE [Concomitant]
     Active Substance: GLIPIZIDE
  5. CRESTOR [Concomitant]
     Active Substance: ROSUVASTATIN CALCIUM
  6. CYCLOBENZAPRINE [Concomitant]
     Active Substance: CYCLOBENZAPRINE
  7. DILAUDID [Concomitant]
     Active Substance: HYDROMORPHONE HYDROCHLORIDE
  8. HYOSCYAMINE [Concomitant]
     Active Substance: HYOSCYAMINE
  9. METROGEL [Concomitant]
     Active Substance: METRONIDAZOLE
  10. LEVOTHYROXINE [Suspect]
     Active Substance: LEVOTHYROXINE
  11. METOPROLOL TARTRATE [Concomitant]
     Active Substance: METOPROLOL TARTRATE
  12. VORICONAZOLE [Concomitant]
     Active Substance: VORICONAZOLE
  13. FUROSEMIDE [Concomitant]
     Active Substance: FUROSEMIDE
  14. PANTOPRAZOLE [Concomitant]
     Active Substance: PANTOPRAZOLE
  15. PREDNISONE [Concomitant]
     Active Substance: PREDNISONE
  16. NOVOLOG [Concomitant]
     Active Substance: INSULIN ASPART
  17. LANTUS [Concomitant]
     Active Substance: INSULIN GLARGINE
  18. ATOVAQUONE [Concomitant]
     Active Substance: ATOVAQUONE
  19. VITAMINS [Concomitant]
     Active Substance: VITAMINS
  20. COLACE [Concomitant]
     Active Substance: DOCUSATE SODIUM

REACTIONS (3)
  - Influenza [None]
  - Pneumonia bacterial [None]
  - Pneumonia fungal [None]

NARRATIVE: CASE EVENT DATE: 20250324
